FAERS Safety Report 10986103 (Version 1)
Quarter: 2015Q1

REPORT INFORMATION
  Report Type: Spontaneous
  Country: US (occurrence: None)
  Receive Date: 20150313
  Receipt Date: 20150313
  Transmission Date: 20150721
  Serious: Yes (Other)
  Sender: FDA-Public Use
  Company Number: 1476820

PATIENT
  Age: 57 Year
  Sex: Male
  Weight: 79.38 kg

DRUGS (4)
  1. ALBUTEROL NEBULIZER (SALBUTAMOL) [Concomitant]
  2. ADVAIR DISKUS (FLUTICASONE PROPIONATE, SALMETEROL XINAFOATE) [Concomitant]
  3. VENTOLIN INHALER (SALBUTAMOL SULFATE) [Concomitant]
  4. XOLAIR [Suspect]
     Active Substance: OMALIZUMAB
     Indication: ASTHMA
     Dosage: 225 MG, 1 IN 3 WL, SUBCUTANEOUS
     Route: 058
     Dates: start: 2005

REACTIONS (1)
  - Renal cancer metastatic [None]

NARRATIVE: CASE EVENT DATE: 20141016
